FAERS Safety Report 10007488 (Version 1)
Quarter: 2014Q1

REPORT INFORMATION
  Report Type: Spontaneous
  Country: US (occurrence: US)
  Receive Date: 20140313
  Receipt Date: 20140313
  Transmission Date: 20141002
  Serious: No
  Sender: FDA-Public Use
  Company Number: US-BAXTER-2014BAX011538

PATIENT
  Sex: Male

DRUGS (3)
  1. DIANEAL LOW CALCIUM [Suspect]
     Indication: PERITONEAL DIALYSIS
     Route: 033
     Dates: start: 20091021
  2. DIANEAL LOW CALCIUM [Suspect]
     Route: 033
     Dates: start: 20091021
  3. CLONIDINE [Concomitant]
     Indication: HYPERTENSION
     Route: 065

REACTIONS (2)
  - Peritoneal dialysis complication [Recovering/Resolving]
  - Hypotension [Recovering/Resolving]
